FAERS Safety Report 14800556 (Version 2)
Quarter: 2018Q2

REPORT INFORMATION
  Report Type: Report from Study
  Country: MX (occurrence: MX)
  Receive Date: 20180424
  Receipt Date: 20180503
  Transmission Date: 20180711
  Serious: Yes (Other)
  Sender: FDA-Public Use
  Company Number: PHHY2018MX070921

PATIENT
  Sex: Male

DRUGS (1)
  1. COSENTYX [Suspect]
     Active Substance: SECUKINUMAB
     Indication: PRODUCT USED FOR UNKNOWN INDICATION
     Dosage: 150 MG/ML, EVERY 6 OR 8 WEEKS
     Route: 058

REACTIONS (5)
  - Macular detachment [Recovering/Resolving]
  - Vitreous detachment [Recovering/Resolving]
  - Retinal detachment [Recovering/Resolving]
  - Inappropriate schedule of drug administration [Unknown]
  - Alopecia [Unknown]
